FAERS Safety Report 14578682 (Version 1)
Quarter: 2018Q1

REPORT INFORMATION
  Report Type: Spontaneous
  Country: US (occurrence: US)
  Receive Date: 20180227
  Receipt Date: 20180227
  Transmission Date: 20180509
  Serious: Yes (Other)
  Sender: FDA-Public Use
  Company Number: US-THE PROACTIV LLC-2042644

PATIENT
  Age: 13 Year
  Sex: Female

DRUGS (3)
  1. PROACTIV PLUS PORE TARGETING TREATMENT [Suspect]
     Active Substance: BENZOYL PEROXIDE
     Indication: PRODUCT USED FOR UNKNOWN INDICATION
     Route: 061
  2. PROACTIV PLUS COMPLEXION PERFECTING HYDRATOR [Suspect]
     Active Substance: SALICYLIC ACID
     Route: 061
  3. PROACTIVPLUS SKIN SMOOTHING EXFOLIATOR [Suspect]
     Active Substance: BENZOYL PEROXIDE
     Route: 061

REACTIONS (4)
  - Eye swelling [Recovered/Resolved]
  - Swelling face [Recovered/Resolved]
  - Lip swelling [Recovered/Resolved]
  - Urticaria [Recovered/Resolved]

NARRATIVE: CASE EVENT DATE: 20180206
